FAERS Safety Report 25067519 (Version 1)
Quarter: 2025Q1

REPORT INFORMATION
  Report Type: Spontaneous
  Country: US (occurrence: None)
  Receive Date: 20250311
  Receipt Date: 20250311
  Transmission Date: 20250408
  Serious: Yes (Hospitalization)
  Sender: FDA-CTU
  Company Number: None

PATIENT
  Age: 74 Year
  Sex: Male

DRUGS (18)
  1. AMBRISENTAN [Suspect]
     Active Substance: AMBRISENTAN
     Indication: Heritable pulmonary arterial hypertension
     Dosage: 10MG QD ORAL?
     Route: 048
     Dates: start: 20240822, end: 20250220
  2. AMBRISENTAN [Suspect]
     Active Substance: AMBRISENTAN
     Indication: Pulmonary arterial hypertension
  3. TADALAFIL [Suspect]
     Active Substance: TADALAFIL
  4. FUROSEMIDE [Concomitant]
     Active Substance: FUROSEMIDE
  5. oxygen intranasal [Concomitant]
  6. ALBUTEROL [Concomitant]
     Active Substance: ALBUTEROL
  7. MELATONIN [Concomitant]
     Active Substance: MELATONIN
  8. REFRESH TEARS [Concomitant]
     Active Substance: CARBOXYMETHYLCELLULOSE SODIUM
  9. alvesco HFA [Concomitant]
  10. atrovent inhl soln [Concomitant]
  11. POTASSIUM CHLORIDE [Concomitant]
     Active Substance: POTASSIUM CHLORIDE
  12. AMLODIPINE [Concomitant]
     Active Substance: AMLODIPINE BESYLATE
  13. ATORVASTATIN [Concomitant]
     Active Substance: ATORVASTATIN
  14. STIOLTO RESPIMAT [Concomitant]
     Active Substance: OLODATEROL HYDROCHLORIDE\TIOTROPIUM BROMIDE MONOHYDRATE
  15. RESPIMAT [Concomitant]
     Dosage: FREQUENCY : DAILY;?
     Route: 048
     Dates: start: 20240822, end: 20250220
  16. ALBUTEOL HFA [Concomitant]
     Dosage: FREQUENCY : DAILY;?
     Route: 048
     Dates: start: 20240822, end: 20250220
  17. OCEAN NASAL AERO SPRY [Concomitant]
     Dosage: FREQUENCY : DAILY;?
     Route: 048
     Dates: start: 20240822, end: 20250220
  18. VITAMIN D3EX) 10MG [Concomitant]
     Dosage: FREQUENCY : DAILY;?
     Route: 048
     Dates: start: 20240822, end: 20250220

REACTIONS (2)
  - Diastolic dysfunction [None]
  - Fluid retention [None]

NARRATIVE: CASE EVENT DATE: 20250218
